FAERS Safety Report 10924329 (Version 1)
Quarter: 2015Q1

REPORT INFORMATION
  Report Type: Spontaneous
  Country: US (occurrence: None)
  Receive Date: 20150129
  Receipt Date: 20150129
  Transmission Date: 20150721
  Serious: Yes (Hospitalization)
  Sender: FDA-Public Use
  Company Number: 101326U

PATIENT
  Age: 27 Year
  Sex: Male
  Weight: 65.8 kg

DRUGS (5)
  1. TEGRETOL [Concomitant]
     Active Substance: CARBAMAZEPINE
  2. DILANTIN (PHENYTOIN) [Concomitant]
  3. DEPAKOTE ER (VALPROATE SEMISODIUM) [Concomitant]
  4. KEPPRA [Suspect]
     Active Substance: LEVETIRACETAM
     Indication: SEIZURE
     Route: 048
     Dates: start: 201301, end: 201303
  5. TRILEPTAL [Concomitant]
     Active Substance: OXCARBAZEPINE

REACTIONS (2)
  - Treatment noncompliance [None]
  - Seizure [None]

NARRATIVE: CASE EVENT DATE: 201303
